FAERS Safety Report 6216719-6 (Version None)
Quarter: 2009Q2

REPORT INFORMATION
  Report Type: 
  Country: None (occurrence: None)
  Receive Date: 20090605
  Receipt Date: 20090601
  Transmission Date: 20091009
  Serious: Yes (Life-Threatening, Hospitalization)
  Sender: FDA-Public Use
  Company Number: GB-ROXANE LABORATORIES, INC.-2009-RO-00541RO

PATIENT
  Age: 11 Year
  Sex: Female

DRUGS (9)
  1. LAMOTRIGINE [Suspect]
     Indication: CONVULSION
  2. VALPROATE SODIUM [Suspect]
     Indication: CONVULSION
     Dosage: 600MG
  3. VALPROATE SODIUM [Suspect]
  4. VALPROATE SODIUM [Suspect]
     Dosage: 400MG
  5. AMOXICILLIN-CLAVULANIC ACID [Suspect]
     Indication: PROPHYLAXIS
  6. CLINDAMYCIN [Suspect]
     Indication: PROPHYLAXIS
  7. NOREPINEPHRINE BITARTRATE [Suspect]
     Indication: SUPPORTIVE CARE
  8. DOPAMINE HCL [Suspect]
     Indication: SUPPORTIVE CARE
  9. HYDROCORTISONE [Suspect]
     Indication: TROPONIN T INCREASED
     Route: 042

REACTIONS (6)
  - AZOTAEMIA [None]
  - COAGULOPATHY [None]
  - DRUG HYPERSENSITIVITY [None]
  - HYPERNATRAEMIA [None]
  - MULTI-ORGAN FAILURE [None]
  - RHABDOMYOLYSIS [None]
